FAERS Safety Report 25374857 (Version 1)
Quarter: 2025Q2

REPORT INFORMATION
  Report Type: Spontaneous
  Country: CH (occurrence: CH)
  Receive Date: 20250529
  Receipt Date: 20250529
  Transmission Date: 20250716
  Serious: Yes (Other)
  Sender: UCB
  Company Number: None

PATIENT
  Age: 12 Month
  Sex: Female
  Weight: 8.75 kg

DRUGS (8)
  1. KEPPRA [Suspect]
     Active Substance: LEVETIRACETAM
     Indication: Epilepsy
     Dosage: 80 MILLIGRAM, 2X/DAY (BID)
     Route: 048
     Dates: start: 20250220, end: 20250316
  2. KEPPRA [Suspect]
     Active Substance: LEVETIRACETAM
     Dosage: 120 MILLIGRAM, 2X/DAY (BID)
     Route: 048
     Dates: start: 20250317, end: 20250403
  3. KEPPRA [Suspect]
     Active Substance: LEVETIRACETAM
     Dosage: 80 MILLIGRAM, 2X/DAY (BID)
     Route: 048
     Dates: start: 20250404, end: 20250405
  4. KEPPRA [Suspect]
     Active Substance: LEVETIRACETAM
     Dosage: 60 MILLIGRAM, 2X/DAY (BID)
     Route: 048
     Dates: start: 20250406, end: 20250407
  5. KEPPRA [Suspect]
     Active Substance: LEVETIRACETAM
     Dosage: 40 MILLIGRAM, 2X/DAY (BID)
     Route: 048
     Dates: start: 20250408, end: 20250409
  6. KEPPRA [Suspect]
     Active Substance: LEVETIRACETAM
     Dosage: 20 MILLIGRAM, 2X/DAY (BID)
     Route: 048
     Dates: start: 20250410, end: 20250411
  7. CLOBAZAM [Concomitant]
     Active Substance: CLOBAZAM
     Indication: Epilepsy
     Dosage: 2.5 MILLIGRAM, ONCE DAILY (QD)
     Route: 048
     Dates: start: 20250223, end: 20250330
  8. VALPROATE [Concomitant]
     Active Substance: VALPROIC ACID
     Indication: Product used for unknown indication

REACTIONS (1)
  - Blood alkaline phosphatase increased [Recovering/Resolving]

NARRATIVE: CASE EVENT DATE: 20250313
